FAERS Safety Report 9644723 (Version 1)
Quarter: 2013Q4

REPORT INFORMATION
  Report Type: Spontaneous
  Country: US (occurrence: None)
  Receive Date: 20131023
  Receipt Date: 20131023
  Transmission Date: 20140711
  Serious: No
  Sender: FDA-Public Use
  Company Number: None

PATIENT
  Age: 25 Year
  Sex: Female
  Weight: 78.93 kg

DRUGS (1)
  1. MIRENA [Suspect]

REACTIONS (2)
  - Muscle spasms [None]
  - Breast tenderness [None]
